FAERS Safety Report 23487364 (Version 3)
Quarter: 2024Q4

REPORT INFORMATION
  Report Type: Spontaneous
  Country: JP (occurrence: JP)
  Receive Date: 20240206
  Receipt Date: 20241115
  Transmission Date: 20250115
  Serious: Yes (Other)
  Sender: ALEXION PHARMACEUTICALS
  Company Number: 2024A026790

PATIENT
  Age: 78 Year
  Weight: 53 kg

DRUGS (34)
  1. ANDEXXA [Suspect]
     Active Substance: ANDEXANET ALFA
     Dosage: 880 MILLIGRAM, UNK
  2. ANDEXXA [Suspect]
     Active Substance: ANDEXANET ALFA
     Dosage: 880 MILLIGRAM, UNK
  3. ANDEXXA [Suspect]
     Active Substance: ANDEXANET ALFA
     Dosage: 880 MILLIGRAM, UNK
  4. ANDEXXA [Suspect]
     Active Substance: ANDEXANET ALFA
     Dosage: 880 MILLIGRAM, UNK
  5. EDOXABAN TOSYLATE [Concomitant]
     Active Substance: EDOXABAN TOSYLATE
     Dosage: DOSE UNKNOWN
  6. EDOXABAN TOSYLATE [Concomitant]
     Active Substance: EDOXABAN TOSYLATE
     Dosage: DOSE UNKNOWN
  7. HEPARIN SODIUM [Concomitant]
     Active Substance: HEPARIN SODIUM
     Dosage: 15:16 8000 UNITS, 15:23 18000 UNITS, 15:35 10000 UNITS
  8. HEPARIN SODIUM [Concomitant]
     Active Substance: HEPARIN SODIUM
     Dosage: 15:16 8000 UNITS, 15:23 18000 UNITS, 15:35 10000 UNITS
     Route: 065
  9. ARGATROBAN [Concomitant]
     Active Substance: ARGATROBAN
     Dosage: 15:42 20 MG
  10. ARGATROBAN [Concomitant]
     Active Substance: ARGATROBAN
     Dosage: 15:42 20 MG
     Route: 065
  11. BICANATE [Concomitant]
     Active Substance: CALCIUM CHLORIDE\MAGNESIUM CHLORIDE\POTASSIUM CHLORIDE\SODIUM BICARBONATE\SODIUM CHLORIDE\TRISODIUM
     Dosage: DOSE UNKNOWN
  12. BICANATE [Concomitant]
     Active Substance: CALCIUM CHLORIDE\MAGNESIUM CHLORIDE\POTASSIUM CHLORIDE\SODIUM BICARBONATE\SODIUM CHLORIDE\TRISODIUM
     Dosage: DOSE UNKNOWN
  13. FENTANYL [Concomitant]
     Active Substance: FENTANYL
     Dosage: DOSE UNKNOWN
  14. FENTANYL [Concomitant]
     Active Substance: FENTANYL
     Dosage: DOSE UNKNOWN
     Route: 065
  15. REMIFENTANIL [Concomitant]
     Active Substance: REMIFENTANIL
     Dosage: DOSE UNKNOWN
  16. REMIFENTANIL [Concomitant]
     Active Substance: REMIFENTANIL
     Dosage: DOSE UNKNOWN
  17. PHENYLEPHRINE HYDROCHLORIDE [Concomitant]
     Active Substance: PHENYLEPHRINE HYDROCHLORIDE
     Dosage: DOSE UNKNOWN
  18. PHENYLEPHRINE HYDROCHLORIDE [Concomitant]
     Active Substance: PHENYLEPHRINE HYDROCHLORIDE
     Dosage: DOSE UNKNOWN
     Route: 065
  19. ROCURONIUM BROMIDE [Concomitant]
     Active Substance: ROCURONIUM BROMIDE
     Dosage: DOSE UNKNOWN
  20. ROCURONIUM BROMIDE [Concomitant]
     Active Substance: ROCURONIUM BROMIDE
     Dosage: DOSE UNKNOWN
  21. MIDAZOLAM [Concomitant]
     Active Substance: MIDAZOLAM
     Dosage: DOSE UNKNOWN
  22. MIDAZOLAM [Concomitant]
     Active Substance: MIDAZOLAM
     Dosage: DOSE UNKNOWN
     Route: 065
  23. EPHEDRINE HYDROCHLORIDE [Concomitant]
     Active Substance: EPHEDRINE HYDROCHLORIDE
     Dosage: DOSE UNKNOWN
  24. EPHEDRINE HYDROCHLORIDE [Concomitant]
     Active Substance: EPHEDRINE HYDROCHLORIDE
     Dosage: DOSE UNKNOWN
     Route: 065
  25. ULINASTATIN [Concomitant]
     Active Substance: ULINASTATIN
     Dosage: DOSE UNKNOWN
  26. ULINASTATIN [Concomitant]
     Active Substance: ULINASTATIN
     Dosage: DOSE UNKNOWN
     Route: 065
  27. METHYLPREDNISOLONE SODIUM SUCCINATE [Concomitant]
     Active Substance: METHYLPREDNISOLONE SODIUM SUCCINATE
     Dosage: DOSE UNKNOWN
  28. METHYLPREDNISOLONE SODIUM SUCCINATE [Concomitant]
     Active Substance: METHYLPREDNISOLONE SODIUM SUCCINATE
     Dosage: DOSE UNKNOWN
     Route: 065
  29. FAMOTIDINE [Concomitant]
     Active Substance: FAMOTIDINE
     Dosage: DOSE UNKNOWN
  30. FAMOTIDINE [Concomitant]
     Active Substance: FAMOTIDINE
     Dosage: DOSE UNKNOWN
  31. TRANEXAMIC ACID [Concomitant]
     Active Substance: TRANEXAMIC ACID
     Dosage: DOSE UNKNOWN
  32. TRANEXAMIC ACID [Concomitant]
     Active Substance: TRANEXAMIC ACID
     Dosage: DOSE UNKNOWN
     Route: 065
  33. CEFAZOLIN SODIUM [Concomitant]
     Active Substance: CEFAZOLIN SODIUM
     Dosage: DOSE UNKNOWN
  34. CEFAZOLIN SODIUM [Concomitant]
     Active Substance: CEFAZOLIN SODIUM
     Dosage: DOSE UNKNOWN

REACTIONS (3)
  - Heparin resistance [Recovered/Resolved]
  - Haemorrhage [Unknown]
  - Renal disorder [Unknown]
